FAERS Safety Report 18207304 (Version 1)
Quarter: 2020Q3

REPORT INFORMATION
  Report Type: Spontaneous
  Country: US (occurrence: US)
  Receive Date: 20200828
  Receipt Date: 20200828
  Transmission Date: 20201103
  Serious: Yes (Other)
  Sender: FDA-Public Use
  Company Number: None

PATIENT
  Age: 93 Year
  Sex: Male
  Weight: 55.3 kg

DRUGS (8)
  1. DORZOLAMIDE 2% [Concomitant]
     Dates: start: 20200815, end: 20200820
  2. LEVETIRACETAM. [Concomitant]
     Active Substance: LEVETIRACETAM
     Dates: start: 20200819
  3. REMDESIVIR. [Suspect]
     Active Substance: REMDESIVIR
     Indication: COVID-19
     Route: 042
     Dates: start: 20200818, end: 20200819
  4. FINASTERIDE. [Concomitant]
     Active Substance: FINASTERIDE
     Dates: start: 20200815, end: 20200818
  5. REMDESIVIR. [Suspect]
     Active Substance: REMDESIVIR
     Indication: COVID-19
     Dosage: ?          OTHER FREQUENCY:ONCE;?
     Route: 042
     Dates: start: 20200818, end: 20200818
  6. DONEPEZIL. [Concomitant]
     Active Substance: DONEPEZIL
     Dates: start: 20200815, end: 20200818
  7. DOXAXOSIN [Concomitant]
     Dates: start: 20200815, end: 20200818
  8. DEXAMETHASONE SODIUM PHOSPHATE. [Concomitant]
     Active Substance: DEXAMETHASONE SODIUM PHOSPHATE
     Dates: start: 20200818, end: 20200824

REACTIONS (5)
  - Cerebral ventricle dilatation [None]
  - Decreased appetite [None]
  - Generalised tonic-clonic seizure [None]
  - Cerebrovascular accident [None]
  - Carotid artery stenosis [None]

NARRATIVE: CASE EVENT DATE: 20200818
